FAERS Safety Report 8479101-7 (Version None)
Quarter: 2012Q2

REPORT INFORMATION
  Report Type: 
  Country: None (occurrence: None)
  Receive Date: 20120629
  Receipt Date: 20120619
  Transmission Date: 20120825
  Serious: Yes (Hospitalization)
  Sender: FDA-Public Use
  Company Number: MX-BRISTOL-MYERS SQUIBB COMPANY-16700585

PATIENT
  Sex: Male

DRUGS (2)
  1. AMARYL [Suspect]
     Route: 048
  2. IRBESARTAN [Suspect]
     Route: 048

REACTIONS (1)
  - GALLBLADDER DISORDER [None]
